FAERS Safety Report 9649303 (Version 3)
Quarter: 2013Q4

REPORT INFORMATION
  Report Type: Spontaneous
  Country: JP (occurrence: JP)
  Receive Date: 20131028
  Receipt Date: 20131211
  Transmission Date: 20140711
  Serious: Yes (Hospitalization, Other)
  Sender: FDA-Public Use
  Company Number: PHHY2013JP087043

PATIENT
  Age: 61 Year
  Sex: Female

DRUGS (2)
  1. TEGRETOL [Suspect]
     Indication: COMPLEX REGIONAL PAIN SYNDROME
     Dosage: 200 MG, DAILY
     Route: 048
     Dates: start: 20120301, end: 20120314
  2. TEGRETOL [Suspect]
     Dosage: 300 MG, DAILY
     Route: 048
     Dates: start: 20120315, end: 20120330

REACTIONS (3)
  - Drug reaction with eosinophilia and systemic symptoms [Recovering/Resolving]
  - Generalised erythema [Unknown]
  - Diabetes mellitus [Recovering/Resolving]
